FAERS Safety Report 6899067-0 (Version None)
Quarter: 2010Q3

REPORT INFORMATION
  Report Type: 
  Country: None (occurrence: None)
  Receive Date: 20100802
  Receipt Date: 20080102
  Transmission Date: 20110219
  Serious: No
  Sender: FDA-Public Use
  Company Number: US-PFIZER INC-2007052974

PATIENT
  Sex: Male
  Weight: 118.18 kg

DRUGS (12)
  1. LYRICA [Suspect]
     Indication: BURNING SENSATION
     Route: 048
     Dates: start: 20061201
  2. LYRICA [Suspect]
     Indication: PARAESTHESIA
  3. LYRICA [Suspect]
     Indication: HYPOAESTHESIA
  4. VYTORIN [Concomitant]
  5. ATENOLOL [Concomitant]
  6. ACTOS [Concomitant]
  7. ADALAT [Concomitant]
  8. METHYLDOPA [Concomitant]
  9. NAPROXEN [Concomitant]
  10. HYDROCHLOROTHIAZIDE [Concomitant]
  11. LISINOPRIL [Concomitant]
  12. ACETYLSALICYLIC ACID SRT [Concomitant]

REACTIONS (2)
  - DRUG INEFFECTIVE [None]
  - ERECTILE DYSFUNCTION [None]
